FAERS Safety Report 5111613-6 (Version None)
Quarter: 2006Q3

REPORT INFORMATION
  Report Type: 
  Country: None (occurrence: None)
  Receive Date: 20060922
  Receipt Date: 20060912
  Transmission Date: 20061208
  Serious: Yes (Other)
  Sender: FDA-Public Use
  Company Number: PHEH2006US11672

PATIENT
  Age: 51 Year
  Sex: Female

DRUGS (2)
  1. MAXZIDE [Suspect]
     Dosage: UNK,UNK
  2. HYDROCHLOROTHIAZIDE [Suspect]
     Dosage: UNK,UNK

REACTIONS (3)
  - DEPRESSION [None]
  - HYPOAESTHESIA [None]
  - PAIN [None]
